FAERS Safety Report 15415368 (Version 2)
Quarter: 2018Q4

REPORT INFORMATION
  Report Type: Spontaneous
  Country: US (occurrence: US)
  Receive Date: 20180921
  Receipt Date: 20181008
  Transmission Date: 20190204
  Serious: No
  Sender: FDA-Public Use
  Company Number: US-BIOGEN-2018BI00634700

PATIENT
  Sex: Female

DRUGS (1)
  1. TYSABRI [Suspect]
     Active Substance: NATALIZUMAB
     Indication: MULTIPLE SCLEROSIS
     Route: 065
     Dates: start: 20130301

REACTIONS (5)
  - Product dose omission [Unknown]
  - Memory impairment [Unknown]
  - Road traffic accident [Recovered/Resolved]
  - Injury [Unknown]
  - Musculoskeletal discomfort [Unknown]
